FAERS Safety Report 7382907-9 (Version None)
Quarter: 2011Q1

REPORT INFORMATION
  Report Type: 
  Country: None (occurrence: None)
  Receive Date: 20110330
  Receipt Date: 20101026
  Transmission Date: 20110831
  Serious: Yes (Other)
  Sender: FDA-Public Use
  Company Number: US-BAYER-201026673NA

PATIENT
  Sex: Female
  Weight: 115.19 kg

DRUGS (2)
  1. TRAMADOL [Concomitant]
     Dosage: UNK
     Dates: start: 20070425
  2. YASMIN [Suspect]
     Indication: CONTRACEPTION
     Route: 048
     Dates: start: 20040812, end: 20060602

REACTIONS (2)
  - GALLBLADDER DISORDER [None]
  - CHOLELITHIASIS [None]
